FAERS Safety Report 9138148 (Version 1)
Quarter: 2013Q1

REPORT INFORMATION
  Report Type: Spontaneous
  Country: US (occurrence: US)
  Receive Date: 20130304
  Receipt Date: 20130304
  Transmission Date: 20140127
  Serious: No
  Sender: FDA-Public Use
  Company Number: US-ABBOTT-12P-163-0932736-00

PATIENT
  Sex: Male

DRUGS (3)
  1. ANDROGEL [Suspect]
     Indication: PRODUCT USED FOR UNKNOWN INDICATION
     Dosage: TWO TUBES DAILY
  2. TESTIM [Suspect]
     Indication: BLOOD TESTOSTERONE DECREASED
     Dosage: 1 IN 1 D (TWO TUBES DAILY)
     Route: 062
  3. TESTIM [Suspect]
     Dosage: 1 IN 1 D (ONE TUBE DAILY)
     Route: 062

REACTIONS (2)
  - Blood testosterone decreased [Recovered/Resolved]
  - Blood testosterone increased [Recovered/Resolved]
